FAERS Safety Report 15467660 (Version 4)
Quarter: 2021Q2

REPORT INFORMATION
  Report Type: Report from Study
  Country: NL (occurrence: NL)
  Receive Date: 20181005
  Receipt Date: 20210621
  Transmission Date: 20210716
  Serious: Yes (Other)
  Sender: FDA-Public Use
  Company Number: NL-AUROBINDO-AUR-APL-2018-048677

PATIENT
  Age: 64 Year
  Sex: Male

DRUGS (10)
  1. PREDNISONE. [Suspect]
     Active Substance: PREDNISONE
     Indication: LYMPHADENOPATHY
     Dosage: UNK
     Route: 065
  2. METHOTREXATE. [Suspect]
     Active Substance: METHOTREXATE
     Indication: PANCREATIC DISORDER
  3. METHOTREXATE. [Suspect]
     Active Substance: METHOTREXATE
     Indication: PROSTATIC DISORDER
  4. PREDNISONE. [Suspect]
     Active Substance: PREDNISONE
     Indication: IMMUNOGLOBULIN G4 RELATED DISEASE
  5. METHOTREXATE. [Suspect]
     Active Substance: METHOTREXATE
     Indication: DISORDER OF ORBIT
  6. PREDNISONE. [Suspect]
     Active Substance: PREDNISONE
     Indication: DISORDER OF ORBIT
  7. PREDNISONE. [Suspect]
     Active Substance: PREDNISONE
     Indication: PROSTATIC DISORDER
  8. METHOTREXATE. [Suspect]
     Active Substance: METHOTREXATE
     Indication: LYMPHADENOPATHY
     Dosage: 15 MILLIGRAM, EVERY WEEK
     Route: 065
  9. METHOTREXATE. [Suspect]
     Active Substance: METHOTREXATE
     Indication: IMMUNOGLOBULIN G4 RELATED DISEASE
  10. PREDNISONE. [Suspect]
     Active Substance: PREDNISONE
     Indication: PANCREATIC DISORDER

REACTIONS (3)
  - Therapy partial responder [Unknown]
  - Therapeutic response decreased [Unknown]
  - Treatment failure [Unknown]
